FAERS Safety Report 10020877 (Version 2)
Quarter: 2014Q2

REPORT INFORMATION
  Report Type: Spontaneous
  Country: JP (occurrence: JP)
  Receive Date: 20140319
  Receipt Date: 20140407
  Transmission Date: 20141212
  Serious: No
  Sender: FDA-Public Use
  Company Number: JP-SA-2014SA032916

PATIENT
  Age: 72 Year
  Sex: Male

DRUGS (2)
  1. DELLEGRA [Suspect]
     Indication: RHINITIS ALLERGIC
     Dosage: 2 TABLETS TWICE A DAY
     Route: 048
     Dates: start: 20140307, end: 20140309
  2. PREMINENT [Concomitant]
     Indication: HYPERTENSION

REACTIONS (1)
  - Blood pressure increased [Unknown]
